FAERS Safety Report 5217515-9 (Version None)
Quarter: 2007Q1

REPORT INFORMATION
  Report Type: 
  Country: None (occurrence: None)
  Receive Date: 20070124
  Receipt Date: 20061027
  Transmission Date: 20070707
  Serious: No
  Sender: FDA-Public Use
  Company Number: US-BRISTOL-MYERS SQUIBB COMPANY-13557954

PATIENT
  Sex: Male

DRUGS (1)
  1. SERZONE [Suspect]
     Dates: start: 20011001

REACTIONS (2)
  - CYSTITIS INTERSTITIAL [None]
  - NEUROGENIC BLADDER [None]
